FAERS Safety Report 5653409-2 (Version None)
Quarter: 2008Q1

REPORT INFORMATION
  Report Type: 
  Country: None (occurrence: None)
  Receive Date: 20080306
  Receipt Date: 20080303
  Transmission Date: 20080703
  Serious: Yes (Other)
  Sender: FDA-Public Use
  Company Number: A0712950A

PATIENT
  Age: 53 Year
  Sex: Female

DRUGS (2)
  1. VALACYCLOVIR [Suspect]
     Indication: DRUG USE FOR UNKNOWN INDICATION
     Dosage: 500MG TWICE PER DAY
     Route: 048
     Dates: start: 20060901, end: 20070101
  2. NO CONCURRENT MEDICATION [Concomitant]

REACTIONS (7)
  - EAR INFECTION [None]
  - HEADACHE [None]
  - HEPATIC LESION [None]
  - LYMPHADENOPATHY [None]
  - PANIC ATTACK [None]
  - PRURITUS [None]
  - SARCOIDOSIS [None]
